FAERS Safety Report 21468642 (Version 1)
Quarter: 2022Q4

REPORT INFORMATION
  Report Type: Report from Study
  Country: US (occurrence: US)
  Receive Date: 20221018
  Receipt Date: 20221018
  Transmission Date: 20230113
  Serious: No
  Sender: FDA-Public Use
  Company Number: US-ABBVIE-22K-163-4500627-00

PATIENT
  Sex: Female

DRUGS (3)
  1. RINVOQ [Suspect]
     Active Substance: UPADACITINIB
     Indication: Rheumatoid arthritis
     Route: 048
     Dates: start: 20220526
  2. PROLIA [Concomitant]
     Active Substance: DENOSUMAB
     Indication: Product used for unknown indication
  3. FOLIC ACID [Concomitant]
     Active Substance: FOLIC ACID
     Indication: Product used for unknown indication

REACTIONS (9)
  - Eye pruritus [Recovering/Resolving]
  - Gingival bleeding [Recovering/Resolving]
  - Candida infection [Recovered/Resolved]
  - Ear pruritus [Recovered/Resolved]
  - Arthralgia [Unknown]
  - Lacrimation increased [Recovering/Resolving]
  - Weight abnormal [Unknown]
  - Blood urine present [Recovering/Resolving]
  - Increased appetite [Unknown]

NARRATIVE: CASE EVENT DATE: 20220101
